FAERS Safety Report 24143284 (Version 1)
Quarter: 2024Q3

REPORT INFORMATION
  Report Type: Spontaneous
  Country: CN (occurrence: CN)
  Receive Date: 20240726
  Receipt Date: 20240726
  Transmission Date: 20241017
  Serious: Yes (Other)
  Sender: MERCK
  Company Number: CN-009507513-2407CHN011921

PATIENT
  Age: 78 Year
  Sex: Female

DRUGS (4)
  1. INVANZ [Suspect]
     Active Substance: ERTAPENEM SODIUM
     Indication: Urinary tract infection
     Dosage: 1 GRAM, QD
     Route: 041
     Dates: start: 20231115, end: 202311
  2. ETIMICIN SULFATE [Concomitant]
     Active Substance: ETIMICIN SULFATE
     Indication: Urinary tract infection
     Dosage: 0.15 GRAM, Q12H; STRENGTH: 1 ML:50 MG
     Route: 041
     Dates: start: 20231111, end: 202311
  3. INSULIN HUMAN [Concomitant]
     Active Substance: INSULIN HUMAN
     Indication: Urinary tract infection
     Dosage: 10 IU IN THE MORNING AND 9 IU IN THE EVENING; STRENGTH 3 ML: 300 UNITS
     Route: 058
     Dates: start: 20231115
  4. FLUCONAZOLE [Concomitant]
     Active Substance: FLUCONAZOLE
     Indication: Urinary tract infection
     Dosage: 200 MILLIGRAM, QD
     Route: 048
     Dates: start: 20231115

REACTIONS (1)
  - Epileptic encephalopathy [Recovered/Resolved]

NARRATIVE: CASE EVENT DATE: 20231118
